FAERS Safety Report 9263307 (Version 1)
Quarter: 2013Q2

REPORT INFORMATION
  Report Type: Spontaneous
  Country: US (occurrence: None)
  Receive Date: 20130429
  Receipt Date: 20130429
  Transmission Date: 20140414
  Serious: Yes (Disabling, Other)
  Sender: FDA-Public Use
  Company Number: None

PATIENT
  Sex: 0

DRUGS (1)
  1. VENLAFAXINE [Suspect]
     Dosage: 75 MG 1 @ DAY
     Dates: start: 20130215, end: 20130219

REACTIONS (8)
  - Headache [None]
  - Asthenia [None]
  - Vomiting [None]
  - Insomnia [None]
  - Feeling abnormal [None]
  - Diarrhoea [None]
  - Pain [None]
  - Gait disturbance [None]
